FAERS Safety Report 14639985 (Version 3)
Quarter: 2018Q1

REPORT INFORMATION
  Report Type: Spontaneous
  Country: US (occurrence: US)
  Receive Date: 20180315
  Receipt Date: 20180322
  Transmission Date: 20180509
  Serious: Yes (Hospitalization)
  Sender: FDA-Public Use
  Company Number: US-ACTELION-A-NJ2018-168990

PATIENT
  Age: 45 Year
  Sex: Male
  Weight: 88.44 kg

DRUGS (1)
  1. VELETRI [Suspect]
     Active Substance: EPOPROSTENOL
     Indication: PULMONARY HYPERTENSION
     Dosage: 61 NG, PER MIN
     Route: 042

REACTIONS (6)
  - Infection [Unknown]
  - Skin injury [Unknown]
  - Cellulitis [Unknown]
  - Sepsis [Unknown]
  - Limb injury [Unknown]
  - Road traffic accident [Unknown]
